FAERS Safety Report 14027764 (Version 1)
Quarter: 2017Q3

REPORT INFORMATION
  Report Type: Spontaneous
  Country: US (occurrence: US)
  Receive Date: 20170929
  Receipt Date: 20170929
  Transmission Date: 20171128
  Serious: No
  Sender: FDA-Public Use
  Company Number: US-TEVA-809050USA

PATIENT
  Sex: Female

DRUGS (1)
  1. QNASL [Suspect]
     Active Substance: BECLOMETHASONE DIPROPIONATE
     Indication: NASAL POLYPS
     Dosage: 1 TO 2 PUFFS AT NIGHT

REACTIONS (3)
  - Sensation of foreign body [Unknown]
  - Productive cough [Unknown]
  - Discomfort [Unknown]
